FAERS Safety Report 10790847 (Version 1)
Quarter: 2015Q1

REPORT INFORMATION
  Report Type: Spontaneous
  Country: US (occurrence: US)
  Receive Date: 20150212
  Receipt Date: 20150212
  Transmission Date: 20150721
  Serious: Yes (Hospitalization, Other)
  Sender: FDA-Public Use
  Company Number: PHEH2015US002827

PATIENT
  Sex: Female

DRUGS (4)
  1. SYNTHROID [Concomitant]
     Active Substance: LEVOTHYROXINE SODIUM
     Indication: PRODUCT USED FOR UNKNOWN INDICATION
     Route: 065
  2. LISINOPRIL. [Concomitant]
     Active Substance: LISINOPRIL
     Indication: PRODUCT USED FOR UNKNOWN INDICATION
     Route: 065
  3. VIVELLE DOT [Suspect]
     Active Substance: ESTRADIOL
     Indication: HORMONE REPLACEMENT THERAPY
     Dosage: 0.037 MG, UNK
     Route: 062
  4. VIVELLE DOT [Suspect]
     Active Substance: ESTRADIOL
     Dosage: 0.05 MG, UNK
     Route: 062

REACTIONS (9)
  - Dyspnoea [Unknown]
  - Nephrolithiasis [Unknown]
  - Ovarian cyst [Unknown]
  - Dizziness [Unknown]
  - Fatigue [Unknown]
  - Urinary tract obstruction [Unknown]
  - Headache [Unknown]
  - Blood pressure decreased [Unknown]
  - Renal pain [Unknown]
